FAERS Safety Report 16700434 (Version 1)
Quarter: 2019Q3

REPORT INFORMATION
  Report Type: Spontaneous
  Country: IT (occurrence: IT)
  Receive Date: 20190814
  Receipt Date: 20190814
  Transmission Date: 20191004
  Serious: Yes (Life-Threatening)
  Sender: FDA-Public Use
  Company Number: IT-TEVA-2019-IT-1090669

PATIENT
  Age: 73 Year
  Sex: Female

DRUGS (2)
  1. PRAVASTATIN. [Suspect]
     Active Substance: PRAVASTATIN
     Route: 065
  2. WARFARIN [Interacting]
     Active Substance: WARFARIN
     Indication: HEART VALVE REPLACEMENT
     Route: 048

REACTIONS (6)
  - Cerebral haemorrhage [Not Recovered/Not Resolved]
  - Labelled drug-drug interaction medication error [Unknown]
  - Coagulation test abnormal [Not Recovered/Not Resolved]
  - Contraindicated product administered [Unknown]
  - Headache [Not Recovered/Not Resolved]
  - Product prescribing issue [Unknown]
